FAERS Safety Report 17269971 (Version 1)
Quarter: 2020Q1

REPORT INFORMATION
  Report Type: Spontaneous
  Country: LV (occurrence: LV)
  Receive Date: 20200114
  Receipt Date: 20200114
  Transmission Date: 20200409
  Serious: Yes (Hospitalization)
  Sender: FDA-Public Use
  Company Number: LV-BAYER-2020-003215

PATIENT
  Age: 44 Year
  Sex: Female

DRUGS (3)
  1. YAZ [Suspect]
     Active Substance: DROSPIRENONE\ETHINYL ESTRADIOL
     Indication: CONTRACEPTION
     Dosage: CYCLICAL
     Route: 048
     Dates: start: 20190930, end: 20191207
  2. WINPEN [Concomitant]
     Indication: PHARYNGITIS
     Route: 048
     Dates: start: 20191108, end: 20191110
  3. MOVALIS [Concomitant]
     Active Substance: MELOXICAM
     Dosage: UNK

REACTIONS (2)
  - Pneumonia [Unknown]
  - Pulmonary artery thrombosis [Unknown]

NARRATIVE: CASE EVENT DATE: 20191207
